FAERS Safety Report 6894547-6 (Version None)
Quarter: 2010Q3

REPORT INFORMATION
  Report Type: 
  Country: None (occurrence: None)
  Receive Date: 20100802
  Receipt Date: 20100723
  Transmission Date: 20110219
  Serious: Yes (Hospitalization)
  Sender: FDA-Public Use
  Company Number: DE-SANOFI-AVENTIS-2010SA043313

PATIENT
  Age: 53 Year
  Sex: Female
  Weight: 90 kg

DRUGS (8)
  1. DOCETAXEL [Suspect]
     Route: 041
     Dates: start: 20100622, end: 20100622
  2. DOCETAXEL [Suspect]
     Route: 041
     Dates: start: 20100722, end: 20100722
  3. OXALIPLATIN [Suspect]
     Route: 041
     Dates: start: 20100622, end: 20100622
  4. OXALIPLATIN [Suspect]
     Route: 041
     Dates: start: 20100722, end: 20100722
  5. FLUOROURACIL [Suspect]
     Route: 041
     Dates: start: 20100622, end: 20100622
  6. FLUOROURACIL [Suspect]
     Route: 041
     Dates: start: 20100722, end: 20100722
  7. FOLINIC ACID [Suspect]
     Route: 041
     Dates: start: 20100622, end: 20100622
  8. FOLINIC ACID [Suspect]
     Route: 041
     Dates: start: 20100722, end: 20100722

REACTIONS (4)
  - ATRIAL FIBRILLATION [None]
  - PALPITATIONS [None]
  - RESTLESSNESS [None]
  - TACHYARRHYTHMIA [None]
